FAERS Safety Report 14735329 (Version 1)
Quarter: 2018Q2

REPORT INFORMATION
  Report Type: Spontaneous
  Country: US (occurrence: US)
  Receive Date: 20180409
  Receipt Date: 20180409
  Transmission Date: 20180711
  Serious: Yes (Life-Threatening, Hospitalization)
  Sender: FDA-Public Use
  Company Number: US-ALKERMES INC.-ALK-2018-002044

PATIENT
  Age: 56 Year
  Sex: Female

DRUGS (1)
  1. VIVITROL [Suspect]
     Active Substance: NALTREXONE
     Indication: DRUG DEPENDENCE
     Dosage: 380 MG, QMO
     Route: 030

REACTIONS (16)
  - Drug withdrawal syndrome [Unknown]
  - Diarrhoea [Unknown]
  - Mydriasis [Unknown]
  - Restlessness [Unknown]
  - Dizziness [Unknown]
  - Hypertensive emergency [Not Recovered/Not Resolved]
  - Tachycardia [Not Recovered/Not Resolved]
  - Gastrointestinal sounds abnormal [Unknown]
  - Vomiting [Unknown]
  - Nausea [Unknown]
  - Abdominal pain [Unknown]
  - Headache [Unknown]
  - Anxiety [Unknown]
  - Syncope [Unknown]
  - Drug screen positive [Unknown]
  - Drug dependence [Unknown]
